FAERS Safety Report 6016436-1 (Version None)
Quarter: 2008Q4

REPORT INFORMATION
  Report Type: 
  Country: None (occurrence: None)
  Receive Date: 20081218
  Receipt Date: 20081208
  Transmission Date: 20090506
  Serious: Yes (Hospitalization, Other)
  Sender: FDA-Public Use
  Company Number: 08IL001119

PATIENT
  Age: 65 Year
  Sex: Female

DRUGS (2)
  1. LITHIUM CARBONATE [Suspect]
     Indication: BIPOLAR DISORDER
  2. TSH-SUPPRESSIVE ELTROXIN [Concomitant]

REACTIONS (6)
  - BIPOLAR DISORDER [None]
  - CONDITION AGGRAVATED [None]
  - DERMATITIS PSORIASIFORM [None]
  - HYPERCALCAEMIA [None]
  - PARATHYROID TUMOUR BENIGN [None]
  - THYROID CANCER [None]
